FAERS Safety Report 13936552 (Version 5)
Quarter: 2022Q2

REPORT INFORMATION
  Report Type: Spontaneous
  Country: US (occurrence: None)
  Receive Date: 20170905
  Receipt Date: 20220623
  Transmission Date: 20220721
  Serious: Yes (Life-Threatening, Other)
  Sender: FDA-Public Use
  Company Number: 2017SE88782

PATIENT
  Sex: Female
  Weight: 72.6 kg

DRUGS (97)
  1. NEXIUM [Suspect]
     Active Substance: ESOMEPRAZOLE MAGNESIUM
     Indication: Dyspepsia
     Route: 048
     Dates: start: 2004, end: 2015
  2. NEXIUM [Suspect]
     Active Substance: ESOMEPRAZOLE MAGNESIUM
     Indication: Gastrooesophageal reflux disease
     Route: 048
     Dates: start: 2004, end: 2015
  3. NEXIUM [Suspect]
     Active Substance: ESOMEPRAZOLE MAGNESIUM
     Indication: Peptic ulcer
     Route: 048
     Dates: start: 2004, end: 2015
  4. NEXIUM [Suspect]
     Active Substance: ESOMEPRAZOLE MAGNESIUM
     Indication: Gastric disorder
     Route: 048
     Dates: start: 2004, end: 2015
  5. NEXIUM [Suspect]
     Active Substance: ESOMEPRAZOLE MAGNESIUM
     Indication: Dyspepsia
     Dosage: 40 MG, UNKNOWN GENERIC
     Route: 065
     Dates: start: 201501, end: 201505
  6. NEXIUM [Suspect]
     Active Substance: ESOMEPRAZOLE MAGNESIUM
     Indication: Gastrooesophageal reflux disease
     Dosage: 40 MG, UNKNOWN GENERIC
     Route: 065
     Dates: start: 201501, end: 201505
  7. NEXIUM [Suspect]
     Active Substance: ESOMEPRAZOLE MAGNESIUM
     Indication: Peptic ulcer
     Dosage: 40 MG, UNKNOWN GENERIC
     Route: 065
     Dates: start: 201501, end: 201505
  8. NEXIUM [Suspect]
     Active Substance: ESOMEPRAZOLE MAGNESIUM
     Indication: Gastric disorder
     Dosage: 40 MG, UNKNOWN GENERIC
     Route: 065
     Dates: start: 201501, end: 201505
  9. NEXIUM [Suspect]
     Active Substance: ESOMEPRAZOLE MAGNESIUM
     Indication: Dyspepsia
     Route: 048
     Dates: start: 200904, end: 201510
  10. NEXIUM [Suspect]
     Active Substance: ESOMEPRAZOLE MAGNESIUM
     Indication: Gastrooesophageal reflux disease
     Route: 048
     Dates: start: 200904, end: 201510
  11. NEXIUM [Suspect]
     Active Substance: ESOMEPRAZOLE MAGNESIUM
     Indication: Peptic ulcer
     Route: 048
     Dates: start: 200904, end: 201510
  12. NEXIUM [Suspect]
     Active Substance: ESOMEPRAZOLE MAGNESIUM
     Indication: Gastric disorder
     Route: 048
     Dates: start: 200904, end: 201510
  13. NEXIUM [Suspect]
     Active Substance: ESOMEPRAZOLE MAGNESIUM
     Indication: Dyspepsia
     Dosage: 40.0MG UNKNOWN
     Route: 048
     Dates: start: 201501, end: 201505
  14. NEXIUM [Suspect]
     Active Substance: ESOMEPRAZOLE MAGNESIUM
     Indication: Gastrooesophageal reflux disease
     Dosage: 40.0MG UNKNOWN
     Route: 048
     Dates: start: 201501, end: 201505
  15. NEXIUM [Suspect]
     Active Substance: ESOMEPRAZOLE MAGNESIUM
     Indication: Peptic ulcer
     Dosage: 40.0MG UNKNOWN
     Route: 048
     Dates: start: 201501, end: 201505
  16. NEXIUM [Suspect]
     Active Substance: ESOMEPRAZOLE MAGNESIUM
     Indication: Gastric disorder
     Dosage: 40.0MG UNKNOWN
     Route: 048
     Dates: start: 201501, end: 201505
  17. NEXIUM [Suspect]
     Active Substance: ESOMEPRAZOLE MAGNESIUM
     Indication: Dyspepsia
     Dosage: 40.0MG UNKNOWN
     Route: 048
     Dates: start: 20150730
  18. NEXIUM [Suspect]
     Active Substance: ESOMEPRAZOLE MAGNESIUM
     Indication: Gastrooesophageal reflux disease
     Dosage: 40.0MG UNKNOWN
     Route: 048
     Dates: start: 20150730
  19. NEXIUM [Suspect]
     Active Substance: ESOMEPRAZOLE MAGNESIUM
     Indication: Peptic ulcer
     Dosage: 40.0MG UNKNOWN
     Route: 048
     Dates: start: 20150730
  20. NEXIUM [Suspect]
     Active Substance: ESOMEPRAZOLE MAGNESIUM
     Indication: Gastric disorder
     Dosage: 40.0MG UNKNOWN
     Route: 048
     Dates: start: 20150730
  21. NEXIUM [Suspect]
     Active Substance: ESOMEPRAZOLE MAGNESIUM
     Indication: Dyspepsia
     Dosage: 40.0MG UNKNOWN
     Route: 048
     Dates: start: 20050108
  22. NEXIUM [Suspect]
     Active Substance: ESOMEPRAZOLE MAGNESIUM
     Indication: Gastrooesophageal reflux disease
     Dosage: 40.0MG UNKNOWN
     Route: 048
     Dates: start: 20050108
  23. NEXIUM [Suspect]
     Active Substance: ESOMEPRAZOLE MAGNESIUM
     Indication: Peptic ulcer
     Dosage: 40.0MG UNKNOWN
     Route: 048
     Dates: start: 20050108
  24. NEXIUM [Suspect]
     Active Substance: ESOMEPRAZOLE MAGNESIUM
     Indication: Gastric disorder
     Dosage: 40.0MG UNKNOWN
     Route: 048
     Dates: start: 20050108
  25. NEXIUM [Suspect]
     Active Substance: ESOMEPRAZOLE MAGNESIUM
     Indication: Dyspepsia
     Dosage: 40.0MG UNKNOWN
     Route: 048
     Dates: start: 200904, end: 201510
  26. NEXIUM [Suspect]
     Active Substance: ESOMEPRAZOLE MAGNESIUM
     Indication: Gastrooesophageal reflux disease
     Dosage: 40.0MG UNKNOWN
     Route: 048
     Dates: start: 200904, end: 201510
  27. NEXIUM [Suspect]
     Active Substance: ESOMEPRAZOLE MAGNESIUM
     Indication: Peptic ulcer
     Dosage: 40.0MG UNKNOWN
     Route: 048
     Dates: start: 200904, end: 201510
  28. NEXIUM [Suspect]
     Active Substance: ESOMEPRAZOLE MAGNESIUM
     Indication: Gastric disorder
     Dosage: 40.0MG UNKNOWN
     Route: 048
     Dates: start: 200904, end: 201510
  29. PRILOSEC [Suspect]
     Active Substance: OMEPRAZOLE MAGNESIUM
     Indication: Gastrooesophageal reflux disease
     Dosage: UNKNOWN
     Route: 048
     Dates: start: 1993, end: 1996
  30. PRILOSEC [Suspect]
     Active Substance: OMEPRAZOLE MAGNESIUM
     Indication: Dyspepsia
     Dosage: UNKNOWN
     Route: 048
     Dates: start: 1993, end: 1996
  31. PRILOSEC [Suspect]
     Active Substance: OMEPRAZOLE MAGNESIUM
     Indication: Gastrooesophageal reflux disease
     Dosage: UNKNOWN
     Route: 048
     Dates: start: 1998, end: 2000
  32. PRILOSEC [Suspect]
     Active Substance: OMEPRAZOLE MAGNESIUM
     Indication: Dyspepsia
     Dosage: UNKNOWN
     Route: 048
     Dates: start: 1998, end: 2000
  33. PRILOSEC [Suspect]
     Active Substance: OMEPRAZOLE MAGNESIUM
     Indication: Gastrooesophageal reflux disease
     Dosage: GENERIC, 40 MG DOSAGE UNKNOWN
     Route: 065
     Dates: start: 200911
  34. PRILOSEC [Suspect]
     Active Substance: OMEPRAZOLE MAGNESIUM
     Indication: Dyspepsia
     Dosage: GENERIC, 40 MG DOSAGE UNKNOWN
     Route: 065
     Dates: start: 200911
  35. PRILOSEC [Suspect]
     Active Substance: OMEPRAZOLE MAGNESIUM
     Indication: Gastrooesophageal reflux disease
     Dosage: 40MG UNKNOWN GENERIC
     Route: 048
     Dates: start: 20091105
  36. PRILOSEC [Suspect]
     Active Substance: OMEPRAZOLE MAGNESIUM
     Indication: Dyspepsia
     Dosage: 40MG UNKNOWN GENERIC
     Route: 048
     Dates: start: 20091105
  37. PRILOSEC [Suspect]
     Active Substance: OMEPRAZOLE MAGNESIUM
     Indication: Gastrooesophageal reflux disease
     Route: 048
     Dates: start: 19930902
  38. PRILOSEC [Suspect]
     Active Substance: OMEPRAZOLE MAGNESIUM
     Indication: Dyspepsia
     Route: 048
     Dates: start: 19930902
  39. DEXILANT [Suspect]
     Active Substance: DEXLANSOPRAZOLE
     Indication: Gastrooesophageal reflux disease
     Dosage: GENERIC
     Route: 065
  40. DEXILANT [Suspect]
     Active Substance: DEXLANSOPRAZOLE
     Indication: Dyspepsia
     Dosage: GENERIC
     Route: 065
  41. DEXILANT [Suspect]
     Active Substance: DEXLANSOPRAZOLE
     Indication: Gastrooesophageal reflux disease
     Route: 065
     Dates: start: 201606, end: 201609
  42. DEXILANT [Suspect]
     Active Substance: DEXLANSOPRAZOLE
     Indication: Dyspepsia
     Route: 065
     Dates: start: 201606, end: 201609
  43. DEXILANT [Suspect]
     Active Substance: DEXLANSOPRAZOLE
     Indication: Gastrooesophageal reflux disease
     Route: 048
     Dates: start: 20160609
  44. DEXILANT [Suspect]
     Active Substance: DEXLANSOPRAZOLE
     Indication: Dyspepsia
     Route: 048
     Dates: start: 20160609
  45. DEXILANT [Suspect]
     Active Substance: DEXLANSOPRAZOLE
     Indication: Gastrooesophageal reflux disease
     Route: 048
     Dates: start: 20160825
  46. DEXILANT [Suspect]
     Active Substance: DEXLANSOPRAZOLE
     Indication: Dyspepsia
     Route: 048
     Dates: start: 20160825
  47. PREVACID [Suspect]
     Active Substance: LANSOPRAZOLE
     Indication: Gastrooesophageal reflux disease
     Dosage: UNKNOWN
     Route: 065
     Dates: start: 2001, end: 2003
  48. PREVACID [Suspect]
     Active Substance: LANSOPRAZOLE
     Indication: Dyspepsia
     Dosage: UNKNOWN
     Route: 065
     Dates: start: 2001, end: 2003
  49. PREVACID [Suspect]
     Active Substance: LANSOPRAZOLE
     Indication: Gastrooesophageal reflux disease
     Route: 048
     Dates: start: 19990604
  50. PREVACID [Suspect]
     Active Substance: LANSOPRAZOLE
     Indication: Dyspepsia
     Route: 048
     Dates: start: 19990604
  51. PANTOPRAZOLE [Suspect]
     Active Substance: PANTOPRAZOLE
     Indication: Gastrooesophageal reflux disease
     Dosage: 40.0MG UNKNOWN
     Route: 065
     Dates: start: 201512
  52. PANTOPRAZOLE [Suspect]
     Active Substance: PANTOPRAZOLE
     Indication: Dyspepsia
     Dosage: 40.0MG UNKNOWN
     Route: 065
     Dates: start: 201512
  53. ACIPHEX [Suspect]
     Active Substance: RABEPRAZOLE SODIUM
     Indication: Gastrooesophageal reflux disease
     Dosage: 20 MG UNKNOWN
     Route: 065
     Dates: start: 200903
  54. ACIPHEX [Suspect]
     Active Substance: RABEPRAZOLE SODIUM
     Indication: Dyspepsia
     Dosage: 20 MG UNKNOWN
     Route: 065
     Dates: start: 200903
  55. BENZONATATE [Concomitant]
     Active Substance: BENZONATATE
     Indication: Cough
     Dosage: 100.0MG UNKNOWN
     Dates: start: 2009
  56. BENZONATATE [Concomitant]
     Active Substance: BENZONATATE
     Indication: Cough
     Dosage: 100.0MG UNKNOWN
     Dates: start: 2013
  57. BENZONATATE [Concomitant]
     Active Substance: BENZONATATE
     Indication: Cough
     Dosage: 100.0MG UNKNOWN
     Dates: start: 2014
  58. BUPROPION [Concomitant]
     Active Substance: BUPROPION
     Indication: Depression
     Dosage: 150.0MG UNKNOWN
     Dates: start: 2016
  59. CARBAMAZEPINE [Concomitant]
     Active Substance: CARBAMAZEPINE
     Indication: Neuralgia
     Dosage: 100.0MG UNKNOWN
     Dates: start: 2017
  60. CITALOPRAM [Concomitant]
     Active Substance: CITALOPRAM HYDROBROMIDE
     Indication: Depression
     Dosage: 40.0MG UNKNOWN
     Dates: start: 2012, end: 2018
  61. CRESTOR [Concomitant]
     Active Substance: ROSUVASTATIN CALCIUM
     Indication: Blood cholesterol increased
     Dosage: 40.0MG UNKNOWN
     Dates: start: 2012, end: 2016
  62. HYDROCODONE [Concomitant]
     Active Substance: HYDROCODONE
     Indication: Cough
     Dates: start: 2016, end: 2018
  63. KETOCONAZOLE [Concomitant]
     Active Substance: KETOCONAZOLE
     Indication: Fungal infection
     Dates: start: 2016, end: 2018
  64. LEVOTHYROXINE [Concomitant]
     Active Substance: LEVOTHYROXINE
     Indication: Thyroid disorder
     Dates: start: 2017, end: 2018
  65. LOSARTAN POTASSIUM [Concomitant]
     Active Substance: LOSARTAN POTASSIUM
     Indication: Hypertension
     Dates: start: 2017
  66. LYRICA [Concomitant]
     Active Substance: PREGABALIN
     Indication: Pain
     Dates: start: 2010, end: 2017
  67. METHYLPREDNISOLONE [Concomitant]
     Active Substance: METHYLPREDNISOLONE
     Indication: Inflammation
     Dates: start: 2016
  68. MOMETASONE FUROATE [Concomitant]
     Active Substance: MOMETASONE FUROATE
     Indication: Rash
     Dates: start: 2012
  69. MOMETASONE FUROATE [Concomitant]
     Active Substance: MOMETASONE FUROATE
     Indication: Rash
     Dates: start: 2013
  70. MOMETASONE FUROATE [Concomitant]
     Active Substance: MOMETASONE FUROATE
     Indication: Rash
     Dates: start: 2016
  71. BYETTA [Concomitant]
     Active Substance: EXENATIDE
  72. LOSARTAN AND HYDROCHLOROTHIAZIDE [Concomitant]
     Active Substance: HYDROCHLOROTHIAZIDE\LOSARTAN POTASSIUM
     Indication: Hypertension
     Dates: start: 2010, end: 2017
  73. ACETAMINOPHEN\OXYCODONE HYDROCHLORIDE [Concomitant]
     Active Substance: ACETAMINOPHEN\OXYCODONE HYDROCHLORIDE
     Indication: Pain
     Dates: start: 2016
  74. PROSTIQ [Concomitant]
     Indication: Depression
     Dates: start: 2016
  75. QVAR [Concomitant]
     Active Substance: BECLOMETHASONE DIPROPIONATE
     Indication: Asthma
     Dosage: 80 MCG
     Route: 048
     Dates: start: 2015, end: 2018
  76. RANITIDINE/ZANTAC [Concomitant]
     Indication: Gastrooesophageal reflux disease
     Dates: start: 2016
  77. RESTASIS [Concomitant]
     Active Substance: CYCLOSPORINE
     Indication: Dry eye
     Dates: start: 2014
  78. ROPINIROLE HYDROCHLORIDE [Concomitant]
     Active Substance: ROPINIROLE HYDROCHLORIDE
     Indication: Muscle disorder
     Dates: start: 2015
  79. TRAMADOL HCL [Concomitant]
     Active Substance: TRAMADOL HYDROCHLORIDE
     Indication: Pain
     Dates: start: 2009
  80. VALACYCLOVIR HYDROCHLORIDE [Concomitant]
     Active Substance: VALACYCLOVIR HYDROCHLORIDE
     Indication: Infection
     Dates: start: 2015, end: 2018
  81. VOLTAREN [Concomitant]
     Active Substance: DICLOFENAC SODIUM
     Indication: Pain
     Dates: start: 2011
  82. PEPCID AC [Concomitant]
     Active Substance: FAMOTIDINE
  83. AMITIZA [Concomitant]
     Active Substance: LUBIPROSTONE
  84. LIPITOR [Concomitant]
     Active Substance: ATORVASTATIN CALCIUM
  85. CYMBALTA [Concomitant]
     Active Substance: DULOXETINE HYDROCHLORIDE
  86. PROMETHAZINE [Concomitant]
     Active Substance: PROMETHAZINE HYDROCHLORIDE
  87. CELEXA [Concomitant]
     Active Substance: CITALOPRAM HYDROBROMIDE
  88. FLUTICASONE [Concomitant]
     Active Substance: FLUTICASONE
  89. DELTASONE [Concomitant]
     Active Substance: PREDNISONE
     Dates: start: 20211109
  90. LEXAPRO [Concomitant]
     Active Substance: ESCITALOPRAM OXALATE
  91. VITAMIN B12 [Concomitant]
     Active Substance: CYANOCOBALAMIN
  92. VITAMIN D3 [Concomitant]
     Active Substance: CHOLECALCIFEROL
  93. ASMANEX [Concomitant]
     Active Substance: MOMETASONE FUROATE
  94. FLUZONE [Concomitant]
     Active Substance: INFLUENZA A VIRUS A/CALIFORNIA/7/2009 X-179A (H1N1) ANTIGEN (FORMALDEHYDE INACTIVATED)\INFLUENZA A V
  95. METHSCOPOLAMINE [Concomitant]
     Active Substance: METHSCOPOLAMINE\METHSCOPOLAMINE BROMIDE
  96. MONTELUKAST [Concomitant]
     Active Substance: MONTELUKAST SODIUM
  97. LINZESS [Concomitant]
     Active Substance: LINACLOTIDE

REACTIONS (4)
  - Renal injury [Unknown]
  - Chronic kidney disease [Not Recovered/Not Resolved]
  - Renal failure [Unknown]
  - Renal impairment [Unknown]
